FAERS Safety Report 16943070 (Version 1)
Quarter: 2019Q4

REPORT INFORMATION
  Report Type: Report from Study
  Country: GB (occurrence: GB)
  Receive Date: 20191021
  Receipt Date: 20191021
  Transmission Date: 20200122
  Serious: Yes (Other)
  Sender: FDA-Public Use
  Company Number: NVSC2019GB010973

PATIENT
  Sex: Female

DRUGS (1)
  1. HYRIMOZ [Suspect]
     Active Substance: ADALIMUMAB-ADAZ
     Indication: UVEITIS
     Dosage: UNK, Q2W
     Route: 065
     Dates: start: 20190215

REACTIONS (2)
  - Heart rate increased [Unknown]
  - Palpitations [Unknown]
